FAERS Safety Report 12628468 (Version 2)
Quarter: 2021Q3

REPORT INFORMATION
  Report Type: Spontaneous
  Country: US (occurrence: US)
  Receive Date: 20160808
  Receipt Date: 20210817
  Transmission Date: 20211014
  Serious: No
  Sender: FDA-Public Use
  Company Number: US-JAZZ-2016-US-004046

PATIENT
  Sex: Male

DRUGS (7)
  1. XYREM [Suspect]
     Active Substance: SODIUM OXYBATE
     Dosage: 4.5 G, BID
     Route: 048
     Dates: start: 201508
  2. METHADONE HCL [Concomitant]
     Active Substance: METHADONE HYDROCHLORIDE
  3. METHYLPHENIDATE [METHYLPHENIDATE HYDROCHLORIDE] [Concomitant]
     Active Substance: METHYLPHENIDATE HYDROCHLORIDE
  4. RITALIN [Concomitant]
     Active Substance: METHYLPHENIDATE HYDROCHLORIDE
  5. XYREM [Suspect]
     Active Substance: SODIUM OXYBATE
     Indication: NARCOLEPSY
     Dosage: 2.25 G, BID
     Route: 048
     Dates: start: 201409, end: 201410
  6. ADDERALL [Concomitant]
     Active Substance: AMPHETAMINE ASPARTATE\AMPHETAMINE SULFATE\DEXTROAMPHETAMINE SACCHARATE\DEXTROAMPHETAMINE SULFATE
  7. XYREM [Suspect]
     Active Substance: SODIUM OXYBATE
     Dosage: DOSE ADJUSTMENTS
     Route: 048

REACTIONS (3)
  - Wrong technique in product usage process [Unknown]
  - Vomiting [Unknown]
  - Gastrooesophageal reflux disease [Unknown]
